FAERS Safety Report 9430472 (Version 1)
Quarter: 2013Q3

REPORT INFORMATION
  Report Type: Spontaneous
  Country: US (occurrence: None)
  Receive Date: 20130726
  Receipt Date: 20130726
  Transmission Date: 20140515
  Serious: Yes (Hospitalization)
  Sender: FDA-Public Use
  Company Number: B0910762A

PATIENT
  Age: 47 Year
  Sex: Male

DRUGS (1)
  1. FONDAPARINUX SODIUM [Suspect]
     Indication: KNEE ARTHROPLASTY
     Route: 058

REACTIONS (9)
  - Heparin-induced thrombocytopenia [None]
  - Decreased appetite [None]
  - Abdominal distension [None]
  - Arthralgia [None]
  - Body temperature increased [None]
  - Vena cava thrombosis [None]
  - Adrenal haemorrhage [None]
  - Pulmonary embolism [None]
  - Deep vein thrombosis [None]
